FAERS Safety Report 21492098 (Version 1)
Quarter: 2022Q4

REPORT INFORMATION
  Report Type: Spontaneous
  Country: US (occurrence: US)
  Receive Date: 20221021
  Receipt Date: 20221021
  Transmission Date: 20230113
  Serious: Yes (Life-Threatening, Hospitalization, Other)
  Sender: FDA-Public Use
  Company Number: US-SUN PHARMACEUTICAL INDUSTRIES LTD-2022R1-360016

PATIENT
  Age: 25 Year
  Sex: Male

DRUGS (1)
  1. BACLOFEN [Suspect]
     Active Substance: BACLOFEN
     Indication: Product used for unknown indication
     Dosage: 25 MILLIGRAM (10 TABLET)
     Route: 048

REACTIONS (4)
  - Altered state of consciousness [Unknown]
  - Drug abuse [Unknown]
  - Overdose [Unknown]
  - Urinary incontinence [Unknown]
